FAERS Safety Report 6177676-4 (Version None)
Quarter: 2009Q2

REPORT INFORMATION
  Report Type: 
  Country: None (occurrence: None)
  Receive Date: 20090504
  Receipt Date: 20090424
  Transmission Date: 20091009
  Serious: Yes (Hospitalization)
  Sender: FDA-Public Use
  Company Number: US-PFIZER INC-2009179586

PATIENT
  Sex: Female
  Weight: 51.5 kg

DRUGS (7)
  1. IRINOTECAN HCL [Suspect]
     Indication: OESOPHAGEAL ADENOCARCINOMA
     Dosage: 180 MG/M2, EVERY  2 WEEKS
     Route: 042
     Dates: start: 20080917, end: 20090218
  2. SUTENT [Suspect]
     Indication: OESOPHAGEAL ADENOCARCINOMA
     Dosage: 25 MG, FOR 14 DAYS
     Route: 048
     Dates: start: 20080918, end: 20090303
  3. CALCIUM FOLINATE [Suspect]
     Indication: OESOPHAGEAL ADENOCARCINOMA
     Dosage: 400 MG/M2, EVERY 2 WEEKS
     Route: 042
     Dates: start: 20080917, end: 20090218
  4. FLUOROURACIL [Suspect]
     Indication: OESOPHAGEAL ADENOCARCINOMA
     Dosage: 400 MG/M2, EVERY 2 WEEKS
     Route: 040
     Dates: start: 20080917, end: 20090218
  5. FLUOROURACIL [Suspect]
     Dosage: 2400 MG/M2, EVERY 2 WEEKS
     Route: 041
     Dates: start: 20080917, end: 20090220
  6. LEVOTHYROXINE [Concomitant]
     Dosage: UNK
     Dates: start: 20080903
  7. VITAMIN D [Concomitant]
     Dosage: UNK
     Dates: start: 20081229

REACTIONS (1)
  - PAIN [None]
